FAERS Safety Report 9426620 (Version 4)
Quarter: 2013Q4

REPORT INFORMATION
  Report Type: Spontaneous
  Country: US (occurrence: US)
  Receive Date: 20130730
  Receipt Date: 20131015
  Transmission Date: 20140711
  Serious: Yes (Death, Hospitalization, Other)
  Sender: FDA-Public Use
  Company Number: US-PFIZER INC-2013220734

PATIENT
  Age: 71 Year
  Sex: Male
  Weight: 90.89 kg

DRUGS (17)
  1. INLYTA [Suspect]
     Indication: METASTATIC RENAL CELL CARCINOMA
     Dosage: 5 MG, 2X/DAY
     Route: 048
     Dates: start: 20121220
  2. ACYCLOVIR [Concomitant]
     Dosage: 400 MG, 2X/DAY
     Route: 048
  3. ALLEGRA [Concomitant]
     Dosage: 30 MG, 1X/DAY
     Route: 048
  4. CALTRATE 600+D [Concomitant]
     Dosage: 600 MG-400 INTL UNITS, 2X/DAY
     Route: 048
  5. CENTRUM SILVER [Concomitant]
     Dosage: UNK, 1X/DAY
     Route: 048
  6. COLACE [Concomitant]
     Dosage: 100 MG, 1X/DAY
     Route: 048
  7. CYMBALTA [Concomitant]
     Dosage: 30 MG, 2X/DAY
     Route: 048
  8. FLUTICASONE [Concomitant]
     Dosage: 1 SPRAY NASAL ONCE A DAY IN EACH NOSTRIL AS NEEDED
     Route: 045
  9. LEVOTHYROXINE [Concomitant]
     Dosage: 50 UG, 1X/DAY
     Route: 048
  10. LYRICA [Concomitant]
     Dosage: 50 MG, 3X/DAY
     Route: 048
  11. OXYCODONE [Concomitant]
     Indication: BREAKTHROUGH PAIN
     Dosage: 10 MG, EVERY 4 HRS (2 TAB(S) ORALLY EVERY 4 HOURS)
     Route: 048
  12. OXYCONTIN [Concomitant]
     Dosage: 20 MG, 2X/DAY (1 TAB ORALLY EVERY 12 HOURS)
     Route: 048
  13. PREVACID [Concomitant]
     Dosage: 30 MG, 1X/DAY
     Route: 048
  14. SINGULAIR [Concomitant]
     Dosage: 10 MG, 1X/DAY
     Route: 048
  15. VITAMIN B COMPLEX WITH C [Concomitant]
     Dosage: UNK, 1 TAB(S) ORALLY ONCE A DAY
     Route: 048
  16. VITAMIN B12 [Concomitant]
     Dosage: 1000 UG, 1X/DAY
     Route: 048
  17. VITAMIN D3 [Concomitant]
     Dosage: 1000 IU, 1X/DAY
     Route: 048

REACTIONS (12)
  - Disease progression [Fatal]
  - Metastatic renal cell carcinoma [Fatal]
  - Pneumonia [Recovering/Resolving]
  - Dyspnoea [Unknown]
  - Fatigue [Unknown]
  - Diarrhoea [Unknown]
  - Chest pain [Unknown]
  - Muscle spasms [Unknown]
  - Skin lesion [Unknown]
  - Frequent bowel movements [Unknown]
  - Dyspnoea [Unknown]
  - Fibrin D dimer increased [Unknown]
